FAERS Safety Report 5640420-0 (Version None)
Quarter: 2008Q1

REPORT INFORMATION
  Report Type: 
  Country: None (occurrence: None)
  Receive Date: 20080227
  Receipt Date: 20080125
  Transmission Date: 20080703
  Serious: No
  Sender: FDA-Public Use
  Company Number: US-BAXTER-2008BH000345

PATIENT
  Age: 23 Year
  Sex: Male
  Weight: 61 kg

DRUGS (12)
  1. HEPARIN SODIUM [Suspect]
     Indication: HAEMODIALYSIS
     Route: 040
     Dates: start: 20080108, end: 20080108
  2. HEPARIN SODIUM [Suspect]
     Route: 040
     Dates: start: 20080108, end: 20080108
  3. HEPARIN SODIUM [Suspect]
     Route: 042
     Dates: start: 20080108, end: 20080108
  4. HYDRALAZINE HCL [Concomitant]
     Indication: HYPERTENSION
     Route: 048
     Dates: start: 20071110
  5. CLONIDINE [Concomitant]
     Indication: HYPERTENSION
     Route: 048
     Dates: start: 20071110
  6. FOSRENAL [Concomitant]
     Indication: HYPERPHOSPHATAEMIA
     Route: 048
     Dates: start: 20071106
  7. VERAPAMIL [Concomitant]
     Indication: HYPERTENSION
     Route: 048
     Dates: start: 20071106
  8. FOLIC ACID [Concomitant]
     Indication: VITAMIN SUPPLEMENTATION
     Route: 048
     Dates: start: 20060605
  9. NAPROVITE [Concomitant]
     Indication: VITAMIN SUPPLEMENTATION
     Route: 048
     Dates: start: 20051029
  10. EPO [Concomitant]
     Indication: ANAEMIA
     Route: 042
  11. ZEMPLAR [Concomitant]
     Indication: ANAEMIA
     Route: 042
  12. VENOFER [Concomitant]
     Indication: ANAEMIA
     Route: 042

REACTIONS (3)
  - HYPOAESTHESIA [None]
  - NAUSEA [None]
  - THROAT TIGHTNESS [None]
